FAERS Safety Report 11980277 (Version 1)
Quarter: 2016Q1

REPORT INFORMATION
  Report Type: Other
  Country: GB (occurrence: GB)
  Receive Date: 20160129
  Receipt Date: 20160129
  Transmission Date: 20160526
  Serious: Yes (Disabling)
  Sender: FDA-Public Use
  Company Number: GB-MYLANLABS-2016M1002878

PATIENT

DRUGS (11)
  1. SOLIFENACIN [Concomitant]
     Active Substance: SOLIFENACIN
     Dosage: 1 DF, QD
     Dates: start: 20151127, end: 20151227
  2. ZEMTARD [Concomitant]
     Dosage: 1 DF, QD
     Dates: start: 20130108
  3. FEXOFENADINE [Concomitant]
     Active Substance: FEXOFENADINE\FEXOFENADINE HYDROCHLORIDE
     Dosage: 1 DF, QD
     Dates: start: 20160111
  4. LOSARTAN. [Concomitant]
     Active Substance: LOSARTAN
     Dosage: 1 DF, QD (STOP MEDICATION DURING DIARRHOEA)
     Dates: start: 20150304
  5. ATORVASTATIN [Concomitant]
     Active Substance: ATORVASTATIN
     Dosage: 1 DF, QD
     Dates: start: 20131205
  6. SANDO K                            /00209301/ [Concomitant]
     Dosage: 1 DF, QD
     Dates: start: 20151027
  7. SILDENAFIL. [Concomitant]
     Active Substance: SILDENAFIL
     Dosage: UNK (USE AS DIRECTED)
     Dates: start: 20140725
  8. CLOPIDOGREL [Concomitant]
     Active Substance: CLOPIDOGREL BISULFATE
     Dosage: 1 DF, QD
     Dates: start: 20141021
  9. METFORMIN [Concomitant]
     Active Substance: METFORMIN HYDROCHLORIDE
     Dosage: UNK (AS DIRECTED)
     Dates: start: 20151027
  10. INDAPAMIDE. [Suspect]
     Active Substance: INDAPAMIDE
     Dosage: UNK
     Dates: start: 20151223
  11. DIPROBASE                          /01210201/ [Concomitant]
     Dosage: UNK (USE DAILY)
     Dates: start: 20150528

REACTIONS (3)
  - Orbital oedema [Not Recovered/Not Resolved]
  - Face oedema [Not Recovered/Not Resolved]
  - Urticaria [Not Recovered/Not Resolved]

NARRATIVE: CASE EVENT DATE: 20160111
